FAERS Safety Report 7515459-0 (Version None)
Quarter: 2011Q2

REPORT INFORMATION
  Report Type: 
  Country: None (occurrence: None)
  Receive Date: 20110601
  Receipt Date: 20110526
  Transmission Date: 20111010
  Serious: Yes (Hospitalization, Other)
  Sender: FDA-Public Use
  Company Number: DE-BRISTOL-MYERS SQUIBB COMPANY-15523749

PATIENT
  Age: 76 Year
  Sex: Female

DRUGS (3)
  1. ABATACEPT [Suspect]
     Dosage: T0:05MAR08; T1:10JUN08; T2:17SEP08; T3:11MAR09; T4:09SEP09; T5:18MAY10; T6:09SEP10.
     Dates: start: 20080301, end: 20100623
  2. ARAVA [Suspect]
     Dosage: FORM:LEFLUNOMIDE20 T0:05MAR08;T1:10JUN08;T2:17SEP08;T3:11MAR09;T4:09SEP09;T5:18MAY10;T6:09SEP10.
     Dates: start: 20041201
  3. PREDNISOLONE [Suspect]

REACTIONS (2)
  - CARDIAC FAILURE [None]
  - SEPSIS [None]
